FAERS Safety Report 8436595-0 (Version None)
Quarter: 2012Q2

REPORT INFORMATION
  Report Type: 
  Country: None (occurrence: None)
  Receive Date: 20120323
  Receipt Date: 20111020
  Transmission Date: 20120825
  Serious: Yes (Hospitalization)
  Sender: FDA-Public Use
  Company Number: 163-21880-11063205

PATIENT
  Age: 66 Year
  Sex: Male
  Weight: 60.3284 kg

DRUGS (14)
  1. XANAX [Concomitant]
  2. CRESTOR [Concomitant]
  3. ALBUTEROL [Concomitant]
  4. WELLBUTRIN [Concomitant]
  5. TOPROL-XL [Concomitant]
  6. NITROGLYCERIN [Concomitant]
  7. REVLIMID [Suspect]
     Indication: MYELODYSPLASTIC SYNDROME
     Dosage: 10 MG, DAILY X 28 DAYS, PO 10 MG, 1 IN 2 D, PO
     Route: 048
     Dates: start: 20110101
  8. REVLIMID [Suspect]
     Indication: MYELODYSPLASTIC SYNDROME
     Dosage: 10 MG, DAILY X 28 DAYS, PO 10 MG, 1 IN 2 D, PO
     Route: 048
     Dates: start: 20110221
  9. MULTIVITAMIN [Concomitant]
  10. ASPIRIN [Concomitant]
  11. PRILOSEC [Concomitant]
  12. FOLIC ACID [Concomitant]
  13. ISORB MONO (ISOSORBIDE MONONITRATE) [Concomitant]
  14. SPIRIVA [Concomitant]

REACTIONS (2)
  - RED BLOOD CELL COUNT DECREASED [None]
  - WHITE BLOOD CELL COUNT DECREASED [None]
